FAERS Safety Report 11702399 (Version 1)
Quarter: 2015Q4

REPORT INFORMATION
  Report Type: Spontaneous
  Country: CA (occurrence: CA)
  Receive Date: 20151105
  Receipt Date: 20151105
  Transmission Date: 20160304
  Serious: Yes (Hospitalization, Other)
  Sender: FDA-Public Use
  Company Number: CA-TEVA-605722ACC

PATIENT
  Age: 78 Year
  Sex: Female
  Weight: 88 kg

DRUGS (1)
  1. CITALOPRAM [Suspect]
     Active Substance: CITALOPRAM HYDROBROMIDE
     Dosage: 20 MILLIGRAM DAILY;
     Route: 048

REACTIONS (7)
  - Dizziness [Unknown]
  - Heart rate increased [Unknown]
  - Arrhythmia [Unknown]
  - Nausea [Unknown]
  - Hypertension [Unknown]
  - Blood pressure fluctuation [Unknown]
  - Fall [Unknown]
